FAERS Safety Report 23337939 (Version 1)
Quarter: 2023Q4

REPORT INFORMATION
  Report Type: Report from Study
  Country: TH (occurrence: TH)
  Receive Date: 20231226
  Receipt Date: 20231226
  Transmission Date: 20240109
  Serious: Yes (Other)
  Sender: FDA-Public Use
  Company Number: TH-BAYER-2023A179064

PATIENT
  Sex: Male

DRUGS (1)
  1. STIVARGA [Suspect]
     Active Substance: REGORAFENIB
     Indication: Colorectal cancer
     Dosage: 2 TABS OD
     Dates: start: 20230407

REACTIONS (4)
  - Amnesia [Unknown]
  - Hypersensitivity [Unknown]
  - Diarrhoea [Unknown]
  - Off label use [None]
